FAERS Safety Report 6818249-7 (Version None)
Quarter: 2010Q3

REPORT INFORMATION
  Report Type: 
  Country: None (occurrence: None)
  Receive Date: 20100706
  Receipt Date: 20070322
  Transmission Date: 20110219
  Serious: No
  Sender: FDA-Public Use
  Company Number: US-PFIZER INC-2007023499

PATIENT
  Sex: Male

DRUGS (3)
  1. ZITHROMAX [Suspect]
     Indication: URINARY TRACT INFECTION
  2. CARDIZEM [Interacting]
     Indication: HYPERTENSION
     Route: 048
  3. CARDIZEM [Interacting]
     Indication: HEART RATE INCREASED

REACTIONS (3)
  - DRUG INEFFECTIVE [None]
  - DRUG INTERACTION [None]
  - HEART RATE INCREASED [None]
